FAERS Safety Report 10034589 (Version 1)
Quarter: 2014Q1

REPORT INFORMATION
  Report Type: Spontaneous
  Country: US (occurrence: None)
  Receive Date: 20140324
  Receipt Date: 20140324
  Transmission Date: 20141002
  Serious: Yes (Life-Threatening, Hospitalization, Disabling)
  Sender: FDA-Public Use
  Company Number: None

PATIENT
  Age: 65 Year
  Sex: Male
  Weight: 91.63 kg

DRUGS (2)
  1. CLOPIDOGREL [Suspect]
     Indication: ANTIPLATELET THERAPY
     Dosage: 2 TABLET (600 MG) ?ONCE PRIRO TO CATH?ORAL
     Route: 048
     Dates: start: 20140224, end: 20140224
  2. ACETAMINOPHEN (TYLENOL) [Concomitant]

REACTIONS (2)
  - Air embolism [None]
  - Coronary artery restenosis [None]
